FAERS Safety Report 23723100 (Version 13)
Quarter: 2025Q4

REPORT INFORMATION
  Report Type: Spontaneous
  Country: EU (occurrence: EU)
  Receive Date: 20240409
  Receipt Date: 20251212
  Transmission Date: 20260119
  Serious: Yes (Death, Life-Threatening, Hospitalization, Other)
  Sender: SANDOZ
  Company Number: EU-ELERTE-202400010

PATIENT
  Sex: Male
  Weight: 79 kg

DRUGS (73)
  1. CODEINE PHOSPHATE\IBUPROFEN [Suspect]
     Active Substance: CODEINE PHOSPHATE\IBUPROFEN
     Indication: Back pain
     Dosage: 1 DF THERAPY START DATE: //2016 THERAPY END DATE: //2016
     Route: 048
     Dates: start: 20160902, end: 2016
  2. CODEINE PHOSPHATE\IBUPROFEN [Suspect]
     Active Substance: CODEINE PHOSPHATE\IBUPROFEN
     Indication: Back pain
  3. ARTANE [Suspect]
     Active Substance: TRIHEXYPHENIDYL HYDROCHLORIDE
     Indication: Depression
     Dosage: 5 MG
     Route: 048
     Dates: start: 20160810, end: 20160908
  4. ARTANE [Suspect]
     Active Substance: TRIHEXYPHENIDYL HYDROCHLORIDE
     Indication: Psychiatric symptom
  5. THIOCOLCHICOSIDE [Suspect]
     Active Substance: THIOCOLCHICOSIDE
     Indication: Product used for unknown indication
     Dosage: UNK
     Route: 048
     Dates: start: 2016, end: 2016
  6. TRAMADOL HYDROCHLORIDE [Suspect]
     Active Substance: TRAMADOL HYDROCHLORIDE
     Indication: Back pain
     Dosage: UNK THERAPY START DATE: //2016 THERAPY  END DATE: //2016, PRESCRIBED HIM OVER A  PERIOD BETWEEN 28-J
     Route: 048
     Dates: start: 20160903, end: 2016
  7. TRAMADOL HYDROCHLORIDE [Suspect]
     Active Substance: TRAMADOL HYDROCHLORIDE
     Indication: Product used for unknown indication
  8. FENTANYL [Suspect]
     Active Substance: FENTANYL
     Indication: Back pain
     Dosage: 12 UG
     Route: 065
  9. FENTANYL [Suspect]
     Active Substance: FENTANYL
     Indication: Back pain
     Dosage: THERAPY START DATE: //2016THERAPY END  DATE: //2016/DUROGESIC. THE DOCTOR  PRESCRIBED HIM OVER A PER
     Route: 062
     Dates: start: 20160726, end: 2016
  10. KETAMINE [Suspect]
     Active Substance: KETAMINE
     Indication: Back pain
     Dosage: UNK, THERAPY START DATE: //2016 THERAPY END DATE: //2016UNK
     Route: 065
     Dates: start: 2016, end: 2016
  11. KETAMINE [Suspect]
     Active Substance: KETAMINE
     Indication: Back pain
  12. PRAZEPAM [Suspect]
     Active Substance: PRAZEPAM
     Indication: Product used for unknown indication
     Dosage: 10 MG
     Route: 048
     Dates: start: 20160902, end: 2016
  13. MIANSERIN HYDROCHLORIDE [Suspect]
     Active Substance: MIANSERIN HYDROCHLORIDE
     Indication: Back pain
     Dosage: PRESCRIBED HIM OVER A PERIOD BETWEEN 28- JUL-2016 AND 05-SEP-2016
     Route: 048
     Dates: start: 2016, end: 2016
  14. MIANSERIN HYDROCHLORIDE [Suspect]
     Active Substance: MIANSERIN HYDROCHLORIDE
     Indication: Back pain
  15. MIANSERIN HYDROCHLORIDE [Suspect]
     Active Substance: MIANSERIN HYDROCHLORIDE
     Indication: Depression
  16. NIFUROXAZIDE [Suspect]
     Active Substance: NIFUROXAZIDE
     Indication: Depression
     Dosage: UNK
     Route: 048
     Dates: start: 2016, end: 2016
  17. NIFUROXAZIDE [Suspect]
     Active Substance: NIFUROXAZIDE
     Indication: Product used for unknown indication
  18. OXYCONTIN [Suspect]
     Active Substance: OXYCODONE HYDROCHLORIDE
     Indication: Product used for unknown indication
     Dosage: UNK
     Route: 065
  19. PAROXETINE [Suspect]
     Active Substance: PAROXETINE
     Dosage: PAROXETINE 20 MG/UNK THERAPY START DATE: //2016 THERAPY END DATE: //2016
     Route: 065
     Dates: start: 2016, end: 2016
  20. PAROXETINE [Suspect]
     Active Substance: PAROXETINE
     Dosage: PAROXETINE 20 MG/UNK THERAPY START DATE: //2016 THERAPY END DATE: //2016
     Route: 048
     Dates: start: 20160817, end: 20160908
  21. PAROXETINE [Suspect]
     Active Substance: PAROXETINE
     Indication: Back pain
     Dosage: PAROXETINE 20 MG/UNK THERAPY START DATE: //2016 THERAPY END DATE: //2016
     Route: 065
     Dates: start: 2016, end: 2016
  22. PAROXETINE [Suspect]
     Active Substance: PAROXETINE
     Indication: Product used for unknown indication
     Dosage: PAROXETINE 20 MG/UNK THERAPY START DATE: //2016 THERAPY END DATE: //2016
     Route: 065
     Dates: start: 2016, end: 2016
  23. PAROXETINE [Suspect]
     Active Substance: PAROXETINE
     Dosage: PAROXETINE 20 MG/UNK THERAPY START DATE: //2016 THERAPY END DATE: //2016
     Route: 065
     Dates: start: 2016, end: 2016
  24. PAROXETINE [Suspect]
     Active Substance: PAROXETINE
     Dosage: PAROXETINE 20 MG/UNK THERAPY START DATE: //2016 THERAPY END DATE: //2016
     Route: 065
     Dates: start: 2016, end: 2016
  25. QUETIAPINE [Suspect]
     Active Substance: QUETIAPINE
     Indication: Product used for unknown indication
     Dosage: 1 TABLET AT NIGHT FOR ONE MONTH PROLONGED-RELEASE TABLET
     Route: 048
     Dates: start: 20160830, end: 2016
  26. QUETIAPINE [Suspect]
     Active Substance: QUETIAPINE
     Dosage: UNK
     Route: 065
  27. OXAZEPAM [Suspect]
     Active Substance: OXAZEPAM
     Indication: Depression
     Route: 048
  28. OXAZEPAM [Suspect]
     Active Substance: OXAZEPAM
     Indication: Psychiatric symptom
  29. SKENAN [Suspect]
     Active Substance: MORPHINE SULFATE
     Indication: Back pain
     Dosage: PRESCRIBED HIM OVER A PERIOD BETWEEN 28- JUL-2016 AND 05-SEP-2016
     Route: 065
     Dates: start: 2016, end: 2016
  30. SKENAN [Suspect]
     Active Substance: MORPHINE SULFATE
     Indication: Back pain
     Dosage: THE DOCTOR PRESCRIBED HIM OVER A PERIOD  BETWEEN 28-JUL-2016 AND 05-SEP-2016
     Route: 065
  31. SKENAN [Suspect]
     Active Substance: MORPHINE SULFATE
     Dosage: 60 MG
     Route: 048
     Dates: start: 20160902, end: 20160905
  32. SKENAN [Suspect]
     Active Substance: MORPHINE SULFATE
     Dosage: 60 MILLIGRAM (AT ONE CAPSULE IN THE  MORNING AND EVENING)
     Route: 048
     Dates: start: 20160817, end: 20160905
  33. SKENAN [Suspect]
     Active Substance: MORPHINE SULFATE
     Dosage: THERAPY START DATE: //2016THERAPY END  DATE: //2016. THE DOCTOR PRESCRIBED HIM  OVER A PERIOD BETWEE
     Route: 065
     Dates: start: 2016, end: 2016
  34. SKENAN [Suspect]
     Active Substance: MORPHINE SULFATE
     Dosage: UNK
     Route: 048
     Dates: start: 201608, end: 20160908
  35. AMISULPRIDE [Suspect]
     Active Substance: AMISULPRIDE
     Indication: Depression
     Dosage: UNK
     Route: 048
  36. AMISULPRIDE [Suspect]
     Active Substance: AMISULPRIDE
     Indication: Product used for unknown indication
  37. ETIFOXINE [Suspect]
     Active Substance: ETIFOXINE
     Indication: Product used for unknown indication
     Dosage: 20 MG
     Route: 048
     Dates: start: 20160810, end: 20160908
  38. TRAMADOL [Suspect]
     Active Substance: TRAMADOL
     Indication: Back pain
     Dosage: UNK THERAPY START DATE: //2016 THERAPY END DATE: //2016UNK
     Route: 065
  39. TRAMADOL [Suspect]
     Active Substance: TRAMADOL
     Indication: Back pain
     Dosage: PRESCRIBED HIM OVER A PERIOD BETWEEN 28- JUL-2016 AND 05-SEP-2016
     Route: 065
     Dates: start: 2016, end: 2016
  40. CLOBAZAM [Suspect]
     Active Substance: CLOBAZAM
     Indication: Product used for unknown indication
     Dosage: 10 MG,SCORED TABLET
     Route: 048
     Dates: start: 20160824, end: 20160908
  41. VALIUM [Suspect]
     Active Substance: DIAZEPAM
     Indication: Depression
     Dosage: STRENGTH 10 MG
     Route: 048
     Dates: start: 20160902, end: 20160905
  42. VALIUM [Suspect]
     Active Substance: DIAZEPAM
     Indication: Psychiatric symptom
     Dosage: UNK
     Route: 048
     Dates: start: 20160905, end: 2016
  43. CLOTIAZEPAM [Suspect]
     Active Substance: CLOTIAZEPAM
     Indication: Product used for unknown indication
     Dosage: 3 DF, QD
     Route: 048
     Dates: start: 20160830, end: 2016
  44. AMISULPRIDE [Concomitant]
     Active Substance: AMISULPRIDE
     Indication: Psychiatric symptom
     Dosage: UNK
     Route: 048
  45. AMISULPRIDE [Concomitant]
     Active Substance: AMISULPRIDE
     Indication: Depression
  46. ALPRAZOLAM [Interacting]
     Active Substance: ALPRAZOLAM
     Indication: Depression
     Dosage: UNK
     Route: 048
  47. ALPRAZOLAM [Interacting]
     Active Substance: ALPRAZOLAM
     Indication: Psychiatric symptom
  48. BROMAZEPAM [Interacting]
     Active Substance: BROMAZEPAM
     Indication: Product used for unknown indication
     Dosage: 6 MG, TID
     Route: 065
  49. CLONAZEPAM [Interacting]
     Active Substance: CLONAZEPAM
     Indication: Product used for unknown indication
     Dosage: 10 MG,ARROW
     Route: 065
  50. COCAINE [Interacting]
     Active Substance: COCAINE
     Indication: Product used for unknown indication
     Dosage: UNK
     Route: 065
  51. IBUPROFEN [Interacting]
     Active Substance: IBUPROFEN
     Indication: Back pain
     Dosage: 1 DF (START DATE: 2016) (STOP DATE: 2016)
     Route: 048
     Dates: start: 2016, end: 2016
  52. IBUPROFEN [Interacting]
     Active Substance: IBUPROFEN
     Indication: Back pain
  53. IBUPROFEN [Interacting]
     Active Substance: IBUPROFEN
     Indication: Back pain
  54. IBUPROFEN [Interacting]
     Active Substance: IBUPROFEN
     Indication: Back pain
  55. MEPHENESIN [Interacting]
     Active Substance: MEPHENESIN
     Indication: Product used for unknown indication
     Dosage: UNK
     Route: 065
  56. MORPHINE [Interacting]
     Active Substance: MORPHINE
     Indication: Product used for unknown indication
     Route: 065
  57. NAFRONYL [Interacting]
     Active Substance: NAFRONYL
     Indication: Product used for unknown indication
     Dosage: UNK
     Route: 065
  58. NORDAZEPAM [Interacting]
     Active Substance: NORDAZEPAM
     Indication: Product used for unknown indication
     Dosage: UNK
     Route: 065
  59. OXAZEPAM [Interacting]
     Active Substance: OXAZEPAM
     Indication: Product used for unknown indication
     Dosage: UNK
     Route: 065
  60. ACETAMINOPHEN [Interacting]
     Active Substance: ACETAMINOPHEN
     Indication: Back pain
     Dosage: UNK (START DATE: 2016) (STOP DATE: 2016)
     Route: 065
     Dates: start: 2016, end: 2016
  61. ACETAMINOPHEN [Interacting]
     Active Substance: ACETAMINOPHEN
     Indication: Back pain
  62. ACETAMINOPHEN [Interacting]
     Active Substance: ACETAMINOPHEN
     Indication: Product used for unknown indication
  63. PAROXETINE HYDROCHLORIDE [Interacting]
     Active Substance: PAROXETINE HYDROCHLORIDE
     Dosage: PAROXETINE 20 MG/UNK THERAPY START DATE: //2016 THERAPY END DATE: //2016 (SATRT DATE: 29-AUG-2016)
     Route: 048
     Dates: start: 20160829, end: 20160908
  64. PAROXETINE HYDROCHLORIDE [Interacting]
     Active Substance: PAROXETINE HYDROCHLORIDE
     Indication: Back pain
     Dosage: EVERY 0.33 DAY UNITS IN INTERVAL. (START DATE: 29-AUG-2016) (END DATE: 2016)
     Route: 048
     Dates: start: 20160829, end: 20160908
  65. PAROXETINE HYDROCHLORIDE [Interacting]
     Active Substance: PAROXETINE HYDROCHLORIDE
     Indication: Product used for unknown indication
     Dosage: PAROXETINE 20 MG/UNK THERAPY START DATE: //2016 THERAPY END DATE: //2016 (START DATE: 29-AUG-2016)
     Route: 065
  66. ACETAMINOPHEN\CODEINE PHOSPHATE [Interacting]
     Active Substance: ACETAMINOPHEN\CODEINE PHOSPHATE
     Indication: Product used for unknown indication
     Dosage: 500 MG
     Route: 048
     Dates: start: 2016, end: 2016
  67. ACETAMINOPHEN\TRAMADOL HYDROCHLORIDE [Interacting]
     Active Substance: ACETAMINOPHEN\TRAMADOL HYDROCHLORIDE
     Indication: Product used for unknown indication
     Dosage: TRAMADOL/PARACETAMOL EG LABO  37,5MG/325 MG
     Route: 065
  68. QUETIAPINE [Interacting]
     Active Substance: QUETIAPINE
     Indication: Product used for unknown indication
     Dosage: 300 MILLIGRAM, 1/DAY
     Route: 065
     Dates: end: 2016
  69. QUETIAPINE [Interacting]
     Active Substance: QUETIAPINE
     Dosage: 500 MG
     Route: 065
  70. QUETIAPINE [Interacting]
     Active Substance: QUETIAPINE
     Dosage: UNK
     Route: 048
     Dates: start: 20160830, end: 2016
  71. TEMAZEPAM [Interacting]
     Active Substance: TEMAZEPAM
     Indication: Product used for unknown indication
     Dosage: UNK
     Route: 065
  72. ZOPICLONE [Interacting]
     Active Substance: ZOPICLONE
     Indication: Psychiatric symptom
     Dosage: UNK
     Route: 048
  73. ZOPICLONE [Interacting]
     Active Substance: ZOPICLONE
     Indication: Depression
     Dosage: UNK
     Route: 065

REACTIONS (65)
  - Pulmonary oedema [Fatal]
  - Pulmonary oedema [Fatal]
  - Hepatic cytolysis [Fatal]
  - Hyperglycaemia [Fatal]
  - Respiratory depression [Fatal]
  - Myocardial infarction [Fatal]
  - Aspiration [Fatal]
  - Coma [Fatal]
  - Cardiomyopathy [Fatal]
  - Myocarditis [Fatal]
  - Coronary artery stenosis [Fatal]
  - Somnolence [Fatal]
  - Hepatitis acute [Fatal]
  - Encephalopathy [Fatal]
  - Accidental poisoning [Fatal]
  - Hepatic cytolysis [Fatal]
  - Overdose [Fatal]
  - Drug screen false positive [Fatal]
  - Jaundice [Fatal]
  - Confusional state [Fatal]
  - Cholecystitis infective [Fatal]
  - Toxicity to various agents [Fatal]
  - Respiratory depression [Fatal]
  - Cardiac disorder [Fatal]
  - White blood cell count increased [Fatal]
  - Hepatic enzyme increased [Fatal]
  - Necrosis [Fatal]
  - Gallbladder injury [Fatal]
  - Coronary artery stenosis [Fatal]
  - Coronary artery stenosis [Fatal]
  - Acute pulmonary oedema [Fatal]
  - Ketosis [Fatal]
  - Labelled drug-drug interaction issue [Fatal]
  - Pancreas infection [Fatal]
  - Cardio-respiratory arrest [Fatal]
  - Intentional self-injury [Fatal]
  - Stenosis [Fatal]
  - Drug abuse [Fatal]
  - Acute pulmonary oedema [Fatal]
  - Acute pulmonary oedema [Fatal]
  - Prescribed overdose [Unknown]
  - Toxicity to various agents [Fatal]
  - Arrhythmia [Unknown]
  - Hypotension [Unknown]
  - Synovitis [Recovered/Resolved]
  - Synovitis [Recovered/Resolved]
  - Product prescribing issue [Unknown]
  - Hepatic failure [Unknown]
  - Hepatobiliary disease [Unknown]
  - Liver injury [Unknown]
  - Nephropathy toxic [Unknown]
  - Cardiac disorder [Unknown]
  - Inflammation [Unknown]
  - Hypersomnia [Unknown]
  - Leukocytosis [Unknown]
  - Monocytosis [Unknown]
  - Asteatosis [Unknown]
  - Aggression [Unknown]
  - Thirst [Unknown]
  - Logorrhoea [Unknown]
  - Panic attack [Unknown]
  - Confusional state [Unknown]
  - Coronary artery disease [Unknown]
  - Bladder injury [Unknown]
  - Pancreatic injury [Unknown]

NARRATIVE: CASE EVENT DATE: 20160101
